FAERS Safety Report 8185377-6 (Version None)
Quarter: 2012Q1

REPORT INFORMATION
  Report Type: 
  Country: None (occurrence: None)
  Receive Date: 20120213
  Receipt Date: 20110504
  Transmission Date: 20120608
  Serious: Yes (Other)
  Sender: FDA-Public Use
  Company Number: E2020-09092-SPO-US

PATIENT
  Age: 85 Year
  Sex: Female

DRUGS (2)
  1. ARICEPT [Suspect]
     Indication: DEMENTIA ALZHEIMER'S TYPE
     Dosage: 10 MG, 1 IN 1 D, ORAL 23 MG, 1 IN 1 D, ORAL
     Route: 048
     Dates: end: 20100601
  2. ARICEPT [Suspect]
     Indication: DEMENTIA ALZHEIMER'S TYPE
     Dosage: 10 MG, 1 IN 1 D, ORAL 23 MG, 1 IN 1 D, ORAL
     Route: 048
     Dates: start: 20100601, end: 20100101

REACTIONS (2)
  - FATIGUE [None]
  - CONVULSION [None]
